FAERS Safety Report 6185704-5 (Version None)
Quarter: 2009Q2

REPORT INFORMATION
  Report Type: 
  Country: None (occurrence: None)
  Receive Date: 20090511
  Receipt Date: 20090430
  Transmission Date: 20091009
  Serious: Yes (Hospitalization)
  Sender: FDA-Public Use
  Company Number: US-ELI_LILLY_AND_COMPANY-US200905000210

PATIENT
  Age: 72 Year
  Sex: Female

DRUGS (2)
  1. ALIMTA [Suspect]
     Dosage: 500 MG/M2, UNK
  2. AVASTIN [Concomitant]

REACTIONS (2)
  - CEREBRAL HAEMORRHAGE [None]
  - CONVULSION [None]
